FAERS Safety Report 6832826-9 (Version None)
Quarter: 2010Q3

REPORT INFORMATION
  Report Type: 
  Country: None (occurrence: None)
  Receive Date: 20100712
  Receipt Date: 20100630
  Transmission Date: 20110219
  Serious: Yes (Other)
  Sender: FDA-Public Use
  Company Number: CH-AMGEN-QUU423154

PATIENT
  Age: 58 Year
  Sex: Female

DRUGS (3)
  1. ENBREL [Suspect]
     Indication: RHEUMATOID ARTHRITIS
     Dates: start: 20100331, end: 20100615
  2. METHOTREXATE [Suspect]
     Indication: RHEUMATOID ARTHRITIS
     Dosage: DOSAGE NOT PROVIDED
     Dates: start: 20081112, end: 20100608
  3. HUMIRA [Concomitant]
     Indication: RHEUMATOID ARTHRITIS
     Dates: start: 20100204, end: 20100318

REACTIONS (6)
  - ALOPECIA [None]
  - ASTHENIA [None]
  - DRUG ERUPTION [None]
  - LIVER FUNCTION TEST ABNORMAL [None]
  - SKIN DISORDER [None]
  - SYSTEMIC LUPUS ERYTHEMATOSUS [None]
